FAERS Safety Report 8513778 (Version 2)
Quarter: 2012Q4

REPORT INFORMATION
  Report Type: 
  Country: US (occurrence: US)
  Receive Date: 20120416
  Receipt Date: 20121112
  Transmission Date: 20130627
  Serious: Yes (Other)
  Sender: FDA-Public Use
  Company Number: US-US-EMD SERONO, INC.-7124723

PATIENT
  Sex: Female
  Weight: 61 kg

DRUGS (14)
  1. REBIF [Suspect]
     Indication: MULTIPLE SCLEROSIS
     Route: 058
     Dates: start: 20030515, end: 201109
  2. ALLEGRA D 12 HOUR [Concomitant]
     Indication: MULTIPLE ALLERGIES
  3. ELAVIL [Concomitant]
     Indication: SLEEP DISORDER
  4. ELAVIL [Concomitant]
     Indication: NEUROPATHY PERIPHERAL
  5. ELAVIL [Concomitant]
     Indication: HEADACHE
  6. YASMIN [Concomitant]
     Indication: CONTRACEPTION
  7. NAPROXEN [Concomitant]
     Indication: PAIN
  8. MULTIVITAMIN [Concomitant]
     Indication: PRODUCT USED FOR UNKNOWN INDICATION
  9. VITAMIN D [Concomitant]
     Indication: PRODUCT USED FOR UNKNOWN INDICATION
  10. CALCIUM [Concomitant]
     Indication: PRODUCT USED FOR UNKNOWN INDICATION
  11. SYMBICORT [Concomitant]
     Indication: ASTHMA
     Dosage: 160/4.5
  12. VENTOLIN [Concomitant]
     Indication: ASTHMA
  13. IMITREX [Concomitant]
     Indication: PRODUCT USED FOR UNKNOWN INDICATION
  14. OMEPRAZOLE [Concomitant]
     Indication: PRODUCT USED FOR UNKNOWN INDICATION

REACTIONS (2)
  - Laryngitis [Recovered/Resolved]
  - Bronchitis [Recovered/Resolved]
